FAERS Safety Report 9928947 (Version 1)
Quarter: 2014Q1

REPORT INFORMATION
  Report Type: Spontaneous
  Country: US (occurrence: None)
  Receive Date: 20140225
  Receipt Date: 20140225
  Transmission Date: 20141002
  Serious: Yes (Hospitalization)
  Sender: FDA-Public Use
  Company Number: FK201400607

PATIENT
  Age: 16 Year
  Sex: Female

DRUGS (3)
  1. METHOTREXATE (MANUFACTURER UNKNOWN) (METHOTREXATE) (METHOTREXATE) [Suspect]
     Indication: ACUTE LYMPHOCYTIC LEUKAEMIA
     Route: 042
  2. CYTARABINE (MANUFACTURER UNKNOWN) (CYTARABINE) (CYTARABINE) [Suspect]
     Route: 037
  3. HYDROCORTISONE (HYDRPCORTISONE) [Concomitant]

REACTIONS (8)
  - Neurological symptom [None]
  - Leukaemia [None]
  - Mucosal inflammation [None]
  - Pyrexia [None]
  - Pancytopenia [None]
  - Leukoencephalopathy [None]
  - Septic shock [None]
  - Multi-organ failure [None]
